FAERS Safety Report 6908545-7 (Version None)
Quarter: 2010Q3

REPORT INFORMATION
  Report Type: 
  Country: None (occurrence: None)
  Receive Date: 20100805
  Receipt Date: 20100729
  Transmission Date: 20110219
  Serious: Yes (Other)
  Sender: FDA-Public Use
  Company Number: US-PFIZER INC-2010084112

PATIENT
  Sex: Female

DRUGS (5)
  1. CELEBREX [Suspect]
     Indication: ARTHRITIS
     Dosage: UNK
  2. LEVBID [Suspect]
     Dosage: UNK
  3. DEXLANSOPRAZOLE [Suspect]
     Dosage: UNK
  4. LORTAB [Suspect]
     Dosage: UNK
  5. CODEINE [Suspect]
     Dosage: UNK

REACTIONS (9)
  - DIVERTICULITIS [None]
  - DRUG HYPERSENSITIVITY [None]
  - DYSPEPSIA [None]
  - HYPERTENSION [None]
  - MUSCLE SPASMS [None]
  - OVARIAN CYST [None]
  - PAIN [None]
  - SOMNOLENCE [None]
  - VISUAL IMPAIRMENT [None]
